FAERS Safety Report 25628032 (Version 4)
Quarter: 2025Q4

REPORT INFORMATION
  Report Type: Spontaneous
  Country: US (occurrence: US)
  Receive Date: 20250731
  Receipt Date: 20251203
  Transmission Date: 20260117
  Serious: No
  Sender: PHARMING GROUP
  Company Number: US-PHARMING-PHAUS2025001105

PATIENT

DRUGS (4)
  1. RUCONEST [Suspect]
     Active Substance: CONESTAT ALFA
     Indication: Hereditary angioedema
     Dosage: 3000 IU, AS NEEDED
     Route: 042
     Dates: start: 202503
  2. RUCONEST [Suspect]
     Active Substance: CONESTAT ALFA
     Indication: Hereditary angioedema
     Dosage: 3000 IU, PRN SWELL
     Route: 042
     Dates: start: 20250220
  3. RUCONEST [Suspect]
     Active Substance: CONESTAT ALFA
     Dosage: 3000 IU, PRN
     Route: 042
     Dates: start: 202503
  4. RUCONEST [Suspect]
     Active Substance: CONESTAT ALFA
     Dosage: 3000 IU, AS NEEDED
     Route: 042
     Dates: start: 20250122

REACTIONS (4)
  - Maternal exposure during pregnancy [Unknown]
  - Condition aggravated [Unknown]
  - Vascular access site complication [Unknown]
  - Underdose [Unknown]

NARRATIVE: CASE EVENT DATE: 20250501
